FAERS Safety Report 9247983 (Version 1)
Quarter: 2013Q1

REPORT INFORMATION
  Report Type: Spontaneous
  Country: US (occurrence: None)
  Receive Date: 20130305
  Receipt Date: 20130305
  Transmission Date: 20140127
  Serious: Yes (Other)
  Sender: FDA-Public Use
  Company Number: 163-21880-12101435

PATIENT
  Age: 67 Year
  Sex: Male
  Weight: 74.84 kg

DRUGS (20)
  1. REVLIMID [Suspect]
     Indication: PLASMA CELL MYELOMA
     Dosage: 10MG, 1 IN 1 D, PO
     Route: 048
     Dates: start: 20100510
  2. ZOLPIDEM (ZOLPIDEM) [Concomitant]
  3. FLUTICASONE (FLUTICASONE) [Concomitant]
  4. DEXAMETHASONE (DEXAMETHASONE) [Concomitant]
  5. TRAVATAN Z (TRAVOPROST) [Concomitant]
  6. LORATIDINE [Concomitant]
  7. AVELOX (MOXIFLOXACIN HYDROCHLORIDE) [Concomitant]
  8. AMOXICILLIN (AMOXICILLIN) [Concomitant]
  9. CEPHALEXIN (CEFALEXIN) [Concomitant]
  10. AZITHROMYCIN (AZITHROMYCIN) [Concomitant]
  11. METFORMIN (METFORMIN) [Concomitant]
  12. ACYCLOVIR (ACICLOVIR) (ACICLOVIR) [Concomitant]
  13. CIPROFLOXACIN (CIPROFLOXACIN) [Concomitant]
  14. GLIPZIDE ER (GLIPZIDE) [Concomitant]
  15. VICODIN (VICODIN) [Concomitant]
  16. PERCOCET (OXYCOCET) [Concomitant]
  17. PHENAZOPYRIDINE (PHENAZOPYRIDINE) [Concomitant]
  18. PROMETHAZINE (PROMETHAZINE) [Concomitant]
  19. MICARDIS HCT (MICARDIS HCT) [Concomitant]
  20. CHERATUSSIN AC (CHERATUSSIN AC) [Concomitant]

REACTIONS (1)
  - Drug ineffective [None]
